FAERS Safety Report 13008106 (Version 2)
Quarter: 2016Q4

REPORT INFORMATION
  Report Type: Spontaneous
  Country: IT (occurrence: IT)
  Receive Date: 20161208
  Receipt Date: 20161216
  Transmission Date: 20170207
  Serious: Yes (Hospitalization)
  Sender: FDA-Public Use
  Company Number: IT-SUN PHARMACEUTICAL INDUSTRIES LTD-2016RR-129139

PATIENT
  Age: 83 Year
  Sex: Female

DRUGS (1)
  1. OLANZAPINE. [Suspect]
     Active Substance: OLANZAPINE
     Indication: PRODUCT USED FOR UNKNOWN INDICATION
     Dosage: 5 MG DAILY
     Route: 048
     Dates: start: 20160922, end: 20160923

REACTIONS (4)
  - Drug dispensing error [Unknown]
  - Overdose [Unknown]
  - Asthenia [Unknown]
  - Sopor [Unknown]

NARRATIVE: CASE EVENT DATE: 20160922
